FAERS Safety Report 7967431-4 (Version None)
Quarter: 2011Q4

REPORT INFORMATION
  Report Type: 
  Country: None (occurrence: None)
  Receive Date: 20111209
  Receipt Date: 20111201
  Transmission Date: 20120403
  Serious: Yes (Hospitalization)
  Sender: FDA-Public Use
  Company Number: ES-B.I. PHARMACEUTICALS,INC./RIDGEFIELD-2011-ES-00266ES

PATIENT
  Age: 80 Year
  Sex: Female

DRUGS (6)
  1. MOTILIUM [Suspect]
     Route: 048
     Dates: start: 20100611, end: 20100709
  2. NOLOTIL [Suspect]
     Route: 048
     Dates: start: 20100611, end: 20100709
  3. CODEISAN [Suspect]
     Route: 048
     Dates: start: 20100611, end: 20100709
  4. NATECAL D [Suspect]
     Route: 048
     Dates: start: 20100611, end: 20100709
  5. SPIRIVA [Suspect]
     Route: 055
     Dates: start: 20100611, end: 20100709
  6. ENALAPRIL MALEATE [Suspect]
     Route: 048
     Dates: start: 20100611, end: 20100709

REACTIONS (1)
  - ERYTHEMA MULTIFORME [None]
